FAERS Safety Report 8261276-6 (Version None)
Quarter: 2012Q2

REPORT INFORMATION
  Report Type: 
  Country: None (occurrence: None)
  Receive Date: 20120405
  Receipt Date: 20120326
  Transmission Date: 20120825
  Serious: Yes (Other)
  Sender: FDA-Public Use
  Company Number: US-JNJFOC-20120313904

PATIENT
  Sex: Female

DRUGS (2)
  1. TOPAMAX [Suspect]
     Indication: HEADACHE
     Route: 065
     Dates: start: 20050101, end: 20090101
  2. TOPIRAMATE [Suspect]
     Indication: HEADACHE
     Route: 065
     Dates: end: 20090101

REACTIONS (4)
  - ABORTION SPONTANEOUS [None]
  - FATIGUE [None]
  - MATERNAL EXPOSURE DURING PREGNANCY [None]
  - NEURALGIA [None]
